FAERS Safety Report 8398168-8 (Version None)
Quarter: 2012Q2

REPORT INFORMATION
  Report Type: 
  Country: None (occurrence: None)
  Receive Date: 20120531
  Receipt Date: 20120525
  Transmission Date: 20120825
  Serious: Yes (Hospitalization, Other)
  Sender: FDA-Public Use
  Company Number: US-PFIZER INC-2009305095

PATIENT
  Age: 16 Year
  Sex: Male

DRUGS (15)
  1. HALOPERIDOL [Suspect]
     Indication: PRODUCT USED FOR UNKNOWN INDICATION
  2. TOPIRAMATE [Suspect]
  3. FLUPHENAZINE HCL [Suspect]
     Indication: PRODUCT USED FOR UNKNOWN INDICATION
  4. OXYCARDIN [Suspect]
     Indication: PRODUCT USED FOR UNKNOWN INDICATION
  5. RISPERIDONE [Suspect]
  6. TETRABENAZINE [Suspect]
     Indication: PRODUCT USED FOR UNKNOWN INDICATION
  7. PIMOZIDE [Interacting]
     Indication: PRODUCT USED FOR UNKNOWN INDICATION
  8. LEVETIRACETAM [Suspect]
  9. BENZTROPINE MESYLATE [Suspect]
     Indication: PRODUCT USED FOR UNKNOWN INDICATION
  10. MIDAZOLAM [Suspect]
     Indication: PRODUCT USED FOR UNKNOWN INDICATION
  11. ZOLPIDEM TARTRATE [Suspect]
  12. ARIPIPRAZOLE [Suspect]
     Indication: PRODUCT USED FOR UNKNOWN INDICATION
  13. ZIPRASIDONE HCL [Suspect]
     Indication: TIC
  14. BENZTROPINE MESYLATE [Suspect]
     Indication: TOURETTE'S DISORDER
  15. FLUOXETINE HYDROCHLORIDE [Interacting]
     Dosage: 30MG

REACTIONS (14)
  - DRUG INTERACTION [None]
  - BLOOD PROLACTIN INCREASED [None]
  - TOXICITY TO VARIOUS AGENTS [None]
  - ELECTROCARDIOGRAM QT PROLONGED [None]
  - SUICIDAL IDEATION [None]
  - TIC [None]
  - DEPRESSION [None]
  - MUSCULOSKELETAL STIFFNESS [None]
  - LOSS OF CONSCIOUSNESS [None]
  - GALACTORRHOEA [None]
  - WEIGHT INCREASED [None]
  - DECREASED APPETITE [None]
  - LETHARGY [None]
  - AFFECTIVE DISORDER [None]
